FAERS Safety Report 16489249 (Version 1)
Quarter: 2019Q2

REPORT INFORMATION
  Report Type: Spontaneous
  Country: US (occurrence: US)
  Receive Date: 20190628
  Receipt Date: 20190628
  Transmission Date: 20190711
  Serious: No
  Sender: FDA-Public Use
  Company Number: US-ACCORD-092755

PATIENT
  Age: 68 Year
  Sex: Female
  Weight: 71.67 kg

DRUGS (1)
  1. CLONAZEPAM ACCORD [Suspect]
     Active Substance: CLONAZEPAM
     Indication: ANXIETY
     Dosage: 2 MG TABLETS IN MORNING, 1 MG TABLET IN THE,?STRENGTH: 0.5 MG?AFTERNOON AND IN EVENING
     Route: 048
     Dates: start: 201806

REACTIONS (3)
  - Withdrawal syndrome [Not Recovered/Not Resolved]
  - Impaired quality of life [Not Recovered/Not Resolved]
  - Product substitution issue [Unknown]
